FAERS Safety Report 5212661-8 (Version None)
Quarter: 2006Q4

REPORT INFORMATION
  Report Type: 
  Country: None (occurrence: None)
  Receive Date: 20061114
  Receipt Date: 20061006
  Transmission Date: 20070319
  Serious: No
  Sender: FDA-Public Use
  Company Number: S06-USA-04186-01

PATIENT
  Age: 21 Year
  Sex: Male

DRUGS (11)
  1. NAMENDA [Suspect]
     Indication: COGNITIVE DISORDER
     Dosage: 10 MG BID PO
     Route: 048
     Dates: start: 20060501, end: 20060715
  2. NAMENDA [Suspect]
     Indication: DYSTONIA
     Dosage: 10 MG BID PO
     Route: 048
     Dates: start: 20060501, end: 20060715
  3. NAMENDA [Suspect]
     Indication: COGNITIVE DISORDER
     Dosage: 5 MG QD PO
     Route: 048
     Dates: start: 20060101, end: 20060501
  4. NAMENDA [Suspect]
     Indication: DYSTONIA
     Dosage: 5 MG QD PO
     Route: 048
     Dates: start: 20060101, end: 20060501
  5. PROPRANOLOL [Concomitant]
  6. SINEMET [Concomitant]
  7. TRAZODONE HCL [Concomitant]
  8. PREVACID [Concomitant]
  9. CLARITIN [Concomitant]
  10. SENNA [Concomitant]
  11. ACETAMINOPHEN [Concomitant]

REACTIONS (1)
  - SKIN REACTION [None]
